FAERS Safety Report 23226578 (Version 1)
Quarter: 2023Q4

REPORT INFORMATION
  Report Type: Spontaneous
  Country: US (occurrence: US)
  Receive Date: 20231124
  Receipt Date: 20231124
  Transmission Date: 20240110
  Serious: Yes (Hospitalization, Other)
  Sender: FDA-Public Use
  Company Number: US-JNJFOC-20231142559

PATIENT
  Age: 8 Decade
  Sex: Female
  Weight: 81 kg

DRUGS (1)
  1. TECVAYLI [Suspect]
     Active Substance: TECLISTAMAB-CQYV
     Indication: Plasma cell myeloma
     Dosage: LAST ADMINISTERED ON 10/17/2023
     Route: 058
     Dates: start: 202303

REACTIONS (2)
  - Sepsis [Unknown]
  - Hepatitis B reactivation [Unknown]
